FAERS Safety Report 10376713 (Version 1)
Quarter: 2014Q3

REPORT INFORMATION
  Report Type: Spontaneous
  Country: US (occurrence: US)
  Receive Date: 20140811
  Receipt Date: 20140811
  Transmission Date: 20150326
  Serious: Yes (Other)
  Sender: FDA-Public Use
  Company Number: US-PFIZER INC-2014221056

PATIENT
  Age: 71 Year
  Sex: Female
  Weight: 63.49 kg

DRUGS (1)
  1. DILANTIN [Suspect]
     Active Substance: PHENYTOIN
     Indication: EPILEPSY
     Dosage: UNK, 3X/DAY
     Route: 048

REACTIONS (5)
  - Visual impairment [Unknown]
  - Hypertension [Unknown]
  - Thrombosis [Unknown]
  - Optic ischaemic neuropathy [Unknown]
  - Tunnel vision [Unknown]
